FAERS Safety Report 6437228-5 (Version None)
Quarter: 2009Q4

REPORT INFORMATION
  Report Type: 
  Country: None (occurrence: None)
  Receive Date: 20091112
  Receipt Date: 20091104
  Transmission Date: 20100525
  Serious: Yes (Other)
  Sender: FDA-Public Use
  Company Number: US-BAYER-200938547NA

PATIENT
  Age: 38 Year
  Sex: Female
  Weight: 49 kg

DRUGS (3)
  1. YAZ [Suspect]
     Indication: CONTRACEPTION
     Dosage: TOTAL DAILY DOSE: 1 DF  UNIT DOSE: 1 DF
     Dates: start: 20080101
  2. YASMIN [Suspect]
     Indication: DRUG USE FOR UNKNOWN INDICATION
  3. ORTHO-NOVUM [Suspect]
     Indication: CONTRACEPTION

REACTIONS (10)
  - BLOOD PRESSURE INCREASED [None]
  - CHEST PAIN [None]
  - MOOD SWINGS [None]
  - MUSCULAR WEAKNESS [None]
  - OLIGOMENORRHOEA [None]
  - PALPITATIONS [None]
  - PREMENSTRUAL SYNDROME [None]
  - SENSATION OF HEAVINESS [None]
  - VARICOSE VEIN [None]
  - VISION BLURRED [None]
